FAERS Safety Report 7155959-9 (Version None)
Quarter: 2010Q4

REPORT INFORMATION
  Report Type: 
  Country: None (occurrence: None)
  Receive Date: 20101214
  Receipt Date: 20101202
  Transmission Date: 20110411
  Serious: Yes (Hospitalization)
  Sender: FDA-Public Use
  Company Number: PHHO2010JP11748

PATIENT
  Sex: Female
  Weight: 72 kg

DRUGS (18)
  1. NEORAL [Suspect]
     Indication: RENAL TRANSPLANT
     Dosage: 200 MG
     Route: 048
     Dates: start: 20081012, end: 20100913
  2. MYCOPHENOLATE MOFETIL [Suspect]
     Indication: RENAL TRANSPLANT
     Dosage: 1000 MG
     Route: 048
     Dates: start: 20081016, end: 20081221
  3. MYCOPHENOLATE MOFETIL [Suspect]
     Dosage: 2000 MG
     Route: 048
     Dates: start: 20081222
  4. PREDONINE [Suspect]
     Indication: RENAL TRANSPLANT
     Dosage: 10 MG
     Route: 048
     Dates: start: 20081012, end: 20090108
  5. PREDONINE [Suspect]
     Dosage: 5 MG
     Route: 048
     Dates: start: 20090109
  6. MICARDIS [Concomitant]
  7. WYTENS [Concomitant]
  8. ZETIA [Concomitant]
  9. SIMVASTATIN [Concomitant]
  10. LIPITOR [Concomitant]
  11. CARVEDILOL [Concomitant]
  12. TAKEPRON [Concomitant]
  13. ALDACTONE [Concomitant]
  14. FLUITRAN [Concomitant]
     Indication: OEDEMA
  15. SALOBEL [Concomitant]
     Indication: HYPERURICAEMIA
  16. EPLERENONE [Concomitant]
     Indication: HYPERTENSION
  17. SIMULECT [Concomitant]
     Indication: RENAL TRANSPLANT
  18. SANDIMMUNE [Concomitant]
     Indication: RENAL TRANSPLANT

REACTIONS (4)
  - BLOOD CREATININE INCREASED [None]
  - CHRONIC ALLOGRAFT NEPHROPATHY [None]
  - NEPHROPATHY TOXIC [None]
  - THERAPEUTIC AGENT TOXICITY [None]
